FAERS Safety Report 16117462 (Version 1)
Quarter: 2019Q1

REPORT INFORMATION
  Report Type: Spontaneous
  Country: DE (occurrence: DE)
  Receive Date: 20190326
  Receipt Date: 20190326
  Transmission Date: 20190418
  Serious: Yes (Other)
  Sender: FDA-Public Use
  Company Number: PHHY2019DE066393

PATIENT
  Age: 71 Year
  Sex: Male

DRUGS (4)
  1. AMOXI 1A PHARMA [Suspect]
     Active Substance: AMOXICILLIN
     Indication: PULPITIS DENTAL
     Dosage: 3 DF, QD (3X1 DAILY)
     Route: 065
  2. AMOXI 1A PHARMA [Suspect]
     Active Substance: AMOXICILLIN
     Dosage: 1 DF, QD
     Route: 065
     Dates: start: 20190313, end: 201903
  3. AMOXI 1A PHARMA [Suspect]
     Active Substance: AMOXICILLIN
     Dosage: 1 DF, BID
     Route: 065
     Dates: start: 201903
  4. AMOXI 1A PHARMA [Suspect]
     Active Substance: AMOXICILLIN
     Dosage: 1 DF, BID (ONE IN THE MORNING AND ONE IN THE EVENING)
     Route: 065
     Dates: start: 20190312, end: 20190313

REACTIONS (3)
  - Parkinson^s disease [Recovered/Resolved]
  - Tremor [Recovered/Resolved]
  - Swelling face [Recovered/Resolved]
